FAERS Safety Report 20168486 (Version 1)
Quarter: 2021Q4

REPORT INFORMATION
  Report Type: Spontaneous
  Country: JP (occurrence: JP)
  Receive Date: 20211210
  Receipt Date: 20211210
  Transmission Date: 20220303
  Serious: Yes (Hospitalization, Other)
  Sender: FDA-Public Use
  Company Number: JP-ASTELLAS-2021JP023734

PATIENT
  Age: 87 Year
  Sex: Male

DRUGS (1)
  1. XTANDI [Suspect]
     Active Substance: ENZALUTAMIDE
     Indication: Product used for unknown indication
     Dosage: UNK UNK, UNKNOWN FREQ.
     Route: 065

REACTIONS (7)
  - Diabetes mellitus [Unknown]
  - General physical health deterioration [Unknown]
  - Anaemia [Unknown]
  - Hypertension [Unknown]
  - Lipids abnormal [Unknown]
  - Hypothyroidism [Unknown]
  - Acute myocardial infarction [Unknown]
